FAERS Safety Report 6304213-3 (Version None)
Quarter: 2009Q3

REPORT INFORMATION
  Report Type: 
  Country: None (occurrence: None)
  Receive Date: 20090811
  Receipt Date: 20090804
  Transmission Date: 20100115
  Serious: Yes (Other)
  Sender: FDA-Public Use
  Company Number: GB-TEVA-205159ISR

PATIENT
  Age: 41 Year
  Sex: Female

DRUGS (1)
  1. DOXYCYCLINE [Suspect]
     Indication: MALARIA PROPHYLAXIS
     Route: 048
     Dates: start: 20090501

REACTIONS (6)
  - DEPRESSED MOOD [None]
  - DEPRESSION [None]
  - MALAISE [None]
  - NAUSEA [None]
  - PANIC ATTACK [None]
  - VOMITING [None]
